FAERS Safety Report 26169279 (Version 1)
Quarter: 2025Q4

REPORT INFORMATION
  Report Type: Spontaneous
  Country: US (occurrence: US)
  Receive Date: 20251217
  Receipt Date: 20251217
  Transmission Date: 20260117
  Serious: Yes (Hospitalization)
  Sender: Otter
  Company Number: US-OTTER-US-2025AST000274

PATIENT
  Age: 15 Year
  Sex: Female
  Weight: 96 kg

DRUGS (3)
  1. METHOTREXATE [Suspect]
     Active Substance: METHOTREXATE
     Indication: Acute lymphocytic leukaemia
     Dosage: 5 DOSES OF INTRAVENOUS METHOTREXATE AT  10-DAY INTERVALS, STARTING AT A DOSE OF 100 MG/M2/DAY AND ES
     Route: 042
  2. ONCASPAR [Concomitant]
     Active Substance: PEGASPARGASE
     Indication: B-cell type acute leukaemia
     Dosage: 2500 IU/M2/DOSE, DAY 2 AND 22
     Route: 065
  3. ONCASPAR [Concomitant]
     Active Substance: PEGASPARGASE
     Dosage: 3750 IU/M2/DOSE, DAYS 2 AND 22
     Route: 065

REACTIONS (7)
  - Toxicity to various agents [Recovered/Resolved]
  - Hepatic steatosis [Recovered/Resolved]
  - Ascites [Recovered/Resolved]
  - Acute kidney injury [Recovered/Resolved]
  - Hepatic failure [Recovered/Resolved]
  - Pancreatitis [Recovered/Resolved]
  - Off label use [Unknown]
